FAERS Safety Report 5678169-0 (Version None)
Quarter: 2008Q1

REPORT INFORMATION
  Report Type: 
  Country: None (occurrence: None)
  Receive Date: 20080319
  Receipt Date: 20080317
  Transmission Date: 20080703
  Serious: Yes (Hospitalization)
  Sender: FDA-Public Use
  Company Number: GRT 2007-13264

PATIENT
  Age: 51 Year
  Sex: Male
  Weight: 104 kg

DRUGS (9)
  1. LIDOCAINE [Suspect]
     Indication: NEURALGIA
     Dosage: 2 PATCHES A DAY
     Dates: start: 20070813, end: 20070813
  2. HUMALOG MIX [Concomitant]
  3. ALLOPURINOL [Concomitant]
  4. TRITACE [Concomitant]
  5. CITALOPRAM HYDROBROMIDE [Concomitant]
  6. XANAX [Concomitant]
  7. PRAXITEN [Concomitant]
  8. ZOLPIDEM [Concomitant]
  9. PREGABALIN [Concomitant]

REACTIONS (4)
  - AGGRESSION [None]
  - CONFUSIONAL STATE [None]
  - DEPRESSION [None]
  - SUICIDAL BEHAVIOUR [None]
